APPROVED DRUG PRODUCT: BUPRENORPHINE HYDROCHLORIDE
Active Ingredient: BUPRENORPHINE HYDROCHLORIDE
Strength: EQ 0.3MG BASE/ML
Dosage Form/Route: INJECTABLE;INJECTION
Application: A076931 | Product #001 | TE Code: AP
Applicant: HIKMA PHARMACEUTICALS USA INC
Approved: Mar 2, 2005 | RLD: No | RS: No | Type: RX